FAERS Safety Report 5225574-2 (Version None)
Quarter: 2007Q1

REPORT INFORMATION
  Report Type: 
  Country: None (occurrence: None)
  Receive Date: 20070131
  Receipt Date: 20070116
  Transmission Date: 20070707
  Serious: Yes (Hospitalization, Other)
  Sender: FDA-Public Use
  Company Number: US-PFIZER INC-2007007310

PATIENT
  Sex: Female
  Weight: 47.6 kg

DRUGS (3)
  1. CLEOCIN HCL CAPSULE [Suspect]
     Indication: TOOTH INFECTION
  2. ALL OTHER THERAPEUTIC PRODUCTS [Concomitant]
  3. MOTRIN [Concomitant]

REACTIONS (5)
  - PYREXIA [None]
  - RASH [None]
  - SKIN EXFOLIATION [None]
  - THERMAL BURN [None]
  - WHITE BLOOD CELL COUNT INCREASED [None]
